FAERS Safety Report 5347941-9 (Version None)
Quarter: 2007Q2

REPORT INFORMATION
  Report Type: 
  Country: None (occurrence: None)
  Receive Date: 20070606
  Receipt Date: 20070531
  Transmission Date: 20071010
  Serious: Yes (Death, Life-Threatening)
  Sender: FDA-Public Use
  Company Number: B0473452A

PATIENT
  Age: 85 Year
  Sex: Female
  Weight: 60 kg

DRUGS (5)
  1. ARIXTRA [Suspect]
     Dosage: 5MG PER DAY
     Route: 058
     Dates: start: 20070327, end: 20070331
  2. COUMADIN [Suspect]
     Dosage: 2MG PER DAY
     Route: 048
     Dates: start: 20070327, end: 20070331
  3. HEMIGOXINE NATIVELLE [Concomitant]
  4. LEVOTHYROXINE SODIUM [Concomitant]
     Route: 048
  5. IRBESARTAN [Concomitant]
     Indication: ESSENTIAL HYPERTENSION
     Dosage: 300MG PER DAY
     Route: 048

REACTIONS (2)
  - HAEMATOMA [None]
  - HYPONATRAEMIA [None]
